FAERS Safety Report 16691986 (Version 2)
Quarter: 2019Q3

REPORT INFORMATION
  Report Type: Spontaneous
  Country: JP (occurrence: JP)
  Receive Date: 20190812
  Receipt Date: 20190819
  Transmission Date: 20191004
  Serious: Yes (Other)
  Sender: FDA-Public Use
  Company Number: JP-PFIZER INC-2019339150

PATIENT
  Age: 70 Year
  Sex: Male

DRUGS (9)
  1. DOCETAXEL. [Suspect]
     Active Substance: DOCETAXEL
     Indication: LUNG ADENOCARCINOMA STAGE IV
     Dosage: UNK, CYCLIC
     Route: 065
     Dates: start: 2014, end: 2017
  2. PEMETREXED. [Suspect]
     Active Substance: PEMETREXED
     Indication: LUNG ADENOCARCINOMA STAGE IV
     Dosage: UNK, CYCLIC
     Route: 065
     Dates: start: 2014, end: 2017
  3. TS-1 [Suspect]
     Active Substance: GIMERACIL\OTERACIL\TEGAFUR
     Indication: LUNG ADENOCARCINOMA STAGE IV
     Dosage: UNK, CYCLIC (SECOND-LINE THERAPY)
     Route: 065
     Dates: start: 2008
  4. CARBOPLATIN. [Suspect]
     Active Substance: CARBOPLATIN
     Indication: LUNG ADENOCARCINOMA STAGE IV
     Dosage: UNK, CYCLIC (FIRST-LINE THERAPY)
     Route: 065
     Dates: start: 2008
  5. ERLOTINIB [Suspect]
     Active Substance: ERLOTINIB
     Indication: LUNG ADENOCARCINOMA STAGE IV
     Dosage: UNK, CYCLIC
     Route: 065
     Dates: start: 2009, end: 2014
  6. CISPLATIN. [Suspect]
     Active Substance: CISPLATIN
     Indication: LUNG ADENOCARCINOMA STAGE IV
     Dosage: UNK, CYCLIC (SECOND-LINE THERAPY)
     Route: 065
     Dates: start: 2008
  7. AFATINIB [Suspect]
     Active Substance: AFATINIB
     Indication: LUNG ADENOCARCINOMA STAGE IV
     Dosage: UNK, CYCLIC
     Route: 065
     Dates: start: 2014, end: 2017
  8. OSIMERTINIB. [Suspect]
     Active Substance: OSIMERTINIB
     Indication: LUNG ADENOCARCINOMA STAGE IV
     Dosage: UNK, CYCLIC
     Route: 065
     Dates: start: 2017
  9. PACLITAXEL. [Suspect]
     Active Substance: PACLITAXEL
     Indication: LUNG ADENOCARCINOMA STAGE IV
     Dosage: UNK, CYCLIC (FIRST-LINE THERAPY)
     Route: 065
     Dates: start: 2008

REACTIONS (3)
  - Neoplasm progression [Unknown]
  - Second primary malignancy [Unknown]
  - Malignant fibrous histiocytoma [Unknown]

NARRATIVE: CASE EVENT DATE: 2018
